FAERS Safety Report 20691087 (Version 1)
Quarter: 2022Q2

REPORT INFORMATION
  Report Type: Spontaneous
  Country: IT (occurrence: IT)
  Receive Date: 20220408
  Receipt Date: 20220408
  Transmission Date: 20220721
  Serious: Yes (Disabling, Other)
  Sender: FDA-Public Use
  Company Number: IT-VIVUS, Inc.-2022V1000002

PATIENT
  Sex: Male

DRUGS (1)
  1. AVANAFIL [Suspect]
     Active Substance: AVANAFIL
     Indication: Product used for unknown indication
     Route: 048
     Dates: start: 201801

REACTIONS (1)
  - Chorioretinitis [Not Recovered/Not Resolved]

NARRATIVE: CASE EVENT DATE: 20190111
